FAERS Safety Report 7553776-9 (Version None)
Quarter: 2011Q2

REPORT INFORMATION
  Report Type: 
  Country: None (occurrence: None)
  Receive Date: 20110617
  Receipt Date: 20110602
  Transmission Date: 20111010
  Serious: Yes (Other)
  Sender: FDA-Public Use
  Company Number: US-JNJFOC-20110312837

PATIENT
  Sex: Female
  Weight: 49.9 kg

DRUGS (3)
  1. REMICADE [Suspect]
     Route: 042
     Dates: start: 20101208
  2. REMICADE [Suspect]
     Dosage: ^HAD BEEN ON INFLIXIMAB TWO YEARS PREVIOUSLY^
     Route: 042
  3. REMICADE [Suspect]
     Indication: RHEUMATOID ARTHRITIS
     Dosage: ^HAD INFUSION TWO WEEKS LATER^
     Route: 042

REACTIONS (6)
  - EPISTAXIS [None]
  - URTICARIA [None]
  - HEADACHE [None]
  - DRUG EXPOSURE DURING PREGNANCY [None]
  - NIGHT SWEATS [None]
  - SWELLING FACE [None]
